FAERS Safety Report 20010252 (Version 1)
Quarter: 2021Q4

REPORT INFORMATION
  Report Type: Spontaneous
  Country: RO (occurrence: RO)
  Receive Date: 20211029
  Receipt Date: 20211029
  Transmission Date: 20220303
  Serious: Yes (Other)
  Sender: FDA-Public Use
  Company Number: RO-ABBVIE-21K-135-4138487-00

PATIENT
  Age: 21 Year
  Sex: Female

DRUGS (1)
  1. VALPROIC ACID [Suspect]
     Active Substance: VALPROIC ACID
     Indication: Seizure
     Dosage: DOSE DECREASED
     Route: 065

REACTIONS (4)
  - Intellectual disability [Recovering/Resolving]
  - Quadriplegia [Recovering/Resolving]
  - Hyperammonaemia [Recovering/Resolving]
  - Extrapyramidal disorder [Recovering/Resolving]
